FAERS Safety Report 21040694 (Version 5)
Quarter: 2023Q1

REPORT INFORMATION
  Report Type: Report from Study
  Country: CA (occurrence: CA)
  Receive Date: 20220704
  Receipt Date: 20230124
  Transmission Date: 20230418
  Serious: Yes (Hospitalization)
  Sender: FDA-Public Use
  Company Number: CA-MYLANLABS-2022M1048893

PATIENT
  Age: 61 Year
  Sex: Male

DRUGS (3)
  1. HULIO [Suspect]
     Active Substance: ADALIMUMAB-FKJP
     Indication: Liver sarcoidosis
     Dosage: 40 MILLIGRAM, BIWEEKLY, (40MG, EVERY 2 WEEKS)
     Route: 058
     Dates: start: 20220629
  2. HULIO [Suspect]
     Active Substance: ADALIMUMAB-FKJP
     Indication: Sarcoidosis of lymph node
  3. HULIO [Suspect]
     Active Substance: ADALIMUMAB-FKJP
     Indication: Renal failure

REACTIONS (4)
  - Infection [Recovered/Resolved]
  - Cerebral disorder [Unknown]
  - Product dose omission issue [Unknown]
  - Off label use [Unknown]
